FAERS Safety Report 8369796-0 (Version None)
Quarter: 2012Q2

REPORT INFORMATION
  Report Type: 
  Country: None (occurrence: None)
  Receive Date: 20120518
  Receipt Date: 20120517
  Transmission Date: 20120825
  Serious: Yes (Death, Hospitalization, Other)
  Sender: FDA-Public Use
  Company Number: PHHY2011GT80109

PATIENT
  Age: 92 Year
  Sex: Female

DRUGS (2)
  1. DIOVAN [Suspect]
     Indication: HYPERTENSION
     Dosage: 160 MG/DAY
     Route: 048
  2. GLUCOVANCE [Concomitant]
     Dosage: UNK UKN, UNK

REACTIONS (4)
  - DEATH [None]
  - HYPOKALAEMIA [None]
  - HYPONATRAEMIA [None]
  - CARDIAC ARREST [None]
